FAERS Safety Report 12756230 (Version 1)
Quarter: 2016Q3

REPORT INFORMATION
  Report Type: Spontaneous
  Country: CN (occurrence: CN)
  Receive Date: 20160916
  Receipt Date: 20160916
  Transmission Date: 20161109
  Serious: Yes (Hospitalization, Other)
  Sender: FDA-Public Use
  Company Number: CN-GLAXOSMITHKLINE-CN2016GSK134188

PATIENT
  Age: 65 Year
  Sex: Female
  Weight: 65 kg

DRUGS (7)
  1. FENBID [Suspect]
     Active Substance: IBUPROFEN
     Indication: HERPES ZOSTER
     Dosage: 0.3 G, BID
     Route: 048
     Dates: start: 20160404, end: 20160411
  2. DEXAMETHASONE. [Suspect]
     Active Substance: DEXAMETHASONE
     Dosage: 5 UNK, UNK
  3. VALACICLOVIR [Suspect]
     Active Substance: VALACYCLOVIR HYDROCHLORIDE
     Indication: HERPES ZOSTER
     Dosage: 0.3 G, BID
     Dates: start: 20160404
  4. LINCOMYCIN HYDROCHLORIDE [Suspect]
     Active Substance: LINCOMYCIN HYDROCHLORIDE
     Indication: HERPES ZOSTER
     Dosage: 2 G, TID
     Route: 048
     Dates: start: 20160404, end: 20160411
  5. MECOBALAMIN TABLETS,500MCG [Suspect]
     Active Substance: METHYLCOBALAMIN
     Indication: HERPES ZOSTER
     Dosage: UNK
     Dates: start: 20160404
  6. INTERFERON [Suspect]
     Active Substance: INTERFERON
     Indication: HERPES ZOSTER
     Dosage: UNK
     Dates: start: 20160404
  7. DEXAMETHASONE. [Suspect]
     Active Substance: DEXAMETHASONE
     Indication: HERPES ZOSTER
     Dosage: 5 MG, UNK
     Dates: start: 20160404

REACTIONS (20)
  - Eye ulcer [Recovering/Resolving]
  - Conjunctival erosion [Recovering/Resolving]
  - Eye disorder [Recovering/Resolving]
  - Rash papular [Recovering/Resolving]
  - Ulcer [Recovering/Resolving]
  - Drug hypersensitivity [Recovering/Resolving]
  - Vulval ulceration [Recovering/Resolving]
  - Erythema [Recovering/Resolving]
  - Rash generalised [Recovering/Resolving]
  - Pyrexia [Recovering/Resolving]
  - Condition aggravated [Unknown]
  - Mouth ulceration [Recovering/Resolving]
  - Pruritus [Recovering/Resolving]
  - Oral mucosa erosion [Recovering/Resolving]
  - Blister [Recovering/Resolving]
  - Rash [Recovering/Resolving]
  - Erythema multiforme [Recovering/Resolving]
  - Vulvar erosion [Recovering/Resolving]
  - Nikolsky^s sign [Recovering/Resolving]
  - Off label use [Unknown]

NARRATIVE: CASE EVENT DATE: 20160404
